FAERS Safety Report 9687228 (Version 1)
Quarter: 2013Q4

REPORT INFORMATION
  Report Type: Spontaneous
  Country: US (occurrence: US)
  Receive Date: 20131113
  Receipt Date: 20131113
  Transmission Date: 20140711
  Serious: No
  Sender: FDA-Public Use
  Company Number: US-009507513-1311USA002799

PATIENT
  Sex: Female

DRUGS (1)
  1. AZASITE [Suspect]
     Indication: BLEPHARITIS
     Dosage: UNK
     Route: 047
     Dates: start: 201111

REACTIONS (3)
  - Drug ineffective [Unknown]
  - Product quality issue [Unknown]
  - Incorrect product storage [Unknown]
